FAERS Safety Report 4332871-1 (Version None)
Quarter: 2004Q1

REPORT INFORMATION
  Report Type: 
  Country: None (occurrence: None)
  Receive Date: 20040330
  Receipt Date: 20040319
  Transmission Date: 20041129
  Serious: Yes (Other)
  Sender: FDA-Public Use
  Company Number: HQWYE016722MAR04

PATIENT
  Age: 76 Year
  Sex: Male
  Weight: 86 kg

DRUGS (12)
  1. MYLOTARG [Suspect]
     Indication: ACUTE MYELOID LEUKAEMIA
     Dosage: 18 MG 1X PER 1 DAY, INTRAVENOUS
     Route: 042
     Dates: start: 20040220, end: 20040220
  2. FLAGYL [Concomitant]
  3. TYLENOL [Concomitant]
  4. ZOVIRAX [Concomitant]
  5. NORVASC [Concomitant]
  6. ROCEPHIN [Concomitant]
  7. LOPRESSOR [Concomitant]
  8. PROTONIX [Concomitant]
  9. VORICONAZOLE [Concomitant]
  10. KCL TAB [Concomitant]
  11. MAGNESIUM SULFATE [Concomitant]
  12. LASIX [Concomitant]

REACTIONS (10)
  - ABDOMINAL DISTENSION [None]
  - ABDOMINAL PAIN [None]
  - ASCITES [None]
  - BLOOD CREATINE INCREASED [None]
  - BLOOD UREA INCREASED [None]
  - CYST [None]
  - HAEMOGLOBIN DECREASED [None]
  - PLATELET COUNT DECREASED [None]
  - PLEURAL EFFUSION [None]
  - WHITE BLOOD CELL COUNT DECREASED [None]
